FAERS Safety Report 9259547 (Version 2)
Quarter: 2013Q3

REPORT INFORMATION
  Report Type: Report from Study
  Country: JP (occurrence: JP)
  Receive Date: 20130429
  Receipt Date: 20130725
  Transmission Date: 20140515
  Serious: Yes (Death)
  Sender: FDA-Public Use
  Company Number: JP-ROCHE-1217535

PATIENT
  Age: 83 Year
  Sex: Male
  Weight: 37 kg

DRUGS (2)
  1. METHOXY POLYETHYLENE GLYCOL-EPOETIN BETA [Suspect]
     Indication: NEPHROGENIC ANAEMIA
     Route: 058
     Dates: start: 20120711, end: 20120711
  2. FESIN [Concomitant]
     Route: 042
     Dates: start: 20120711, end: 20120718

REACTIONS (2)
  - Respiratory arrest [Fatal]
  - Malnutrition [Unknown]
